FAERS Safety Report 10465528 (Version 2)
Quarter: 2014Q4

REPORT INFORMATION
  Report Type: Spontaneous
  Country: US (occurrence: US)
  Receive Date: 20140919
  Receipt Date: 20141103
  Transmission Date: 20150528
  Serious: Yes (Other)
  Sender: FDA-Public Use
  Company Number: US-BAYER-2014-139990

PATIENT
  Age: 24 Year
  Sex: Female

DRUGS (1)
  1. MAGNEVIST [Suspect]
     Active Substance: GADOPENTETATE DIMEGLUMINE
     Indication: NUCLEAR MAGNETIC RESONANCE IMAGING
     Dosage: UNK
     Route: 042

REACTIONS (4)
  - Chest discomfort [None]
  - Oropharyngeal pain [None]
  - Headache [None]
  - Wheezing [None]

NARRATIVE: CASE EVENT DATE: 20140826
